FAERS Safety Report 4590984-3 (Version None)
Quarter: 2005Q1

REPORT INFORMATION
  Report Type: 
  Country: None (occurrence: None)
  Receive Date: 20050222
  Receipt Date: 20050222
  Transmission Date: 20050727
  Serious: Yes (Hospitalization)
  Sender: FDA-Public Use
  Company Number: None

PATIENT
  Age: 81 Year
  Sex: Female

DRUGS (1)
  1. CAPREOMYCIN [Suspect]
     Indication: TUBERCULOSIS
     Dosage: 750 MG DAILY IV
     Route: 042
     Dates: start: 20040103, end: 20040108

REACTIONS (2)
  - NEPHROPATHY TOXIC [None]
  - RENAL FAILURE [None]
